FAERS Safety Report 4774781-1 (Version None)
Quarter: 2005Q3

REPORT INFORMATION
  Report Type: 
  Country: None (occurrence: None)
  Receive Date: 20050919
  Receipt Date: 20050907
  Transmission Date: 20060218
  Serious: Yes (Other)
  Sender: FDA-Public Use
  Company Number: 2005-BP-15636RO

PATIENT
  Age: 6 Month
  Sex: Female

DRUGS (10)
  1. MIDAZOLAM HCL [Suspect]
     Indication: SEDATION
     Dosage: IV
     Route: 042
  2. FENTANYL [Suspect]
     Indication: ANALGESIC EFFECT
     Dosage: IV
     Route: 042
  3. METHADONE HCL [Suspect]
     Indication: SEDATION
     Dosage: SEE TEXT
  4. DIAZEPAM [Suspect]
     Indication: SEDATION
     Dosage: SEE TEXT
  5. FLUTICASONE PROPIONATE [Concomitant]
  6. ELEMENTAL IRON (IRON) [Concomitant]
  7. ERYTHROPOIETIN (ERYTHROPOIETIN) [Concomitant]
  8. URSODIOL (URSODEXYCHOLIC ACID) [Concomitant]
  9. CALCIUM CARBONATE (CALCIUM CARBONATE) [Concomitant]
  10. DIHYDROTACHYSTEROL (DIHYDROATACHYSTEROL) [Concomitant]

REACTIONS (13)
  - AGITATION [None]
  - CATHETER RELATED COMPLICATION [None]
  - DIARRHOEA [None]
  - DRUG WITHDRAWAL SYNDROME [None]
  - ELECTROCARDIOGRAM ST SEGMENT DEPRESSION [None]
  - GASTRIC DISORDER [None]
  - HYPERTENSION [None]
  - MYOCARDIAL ISCHAEMIA [None]
  - SEPSIS [None]
  - TACHYCARDIA [None]
  - THROMBOCYTOPENIA [None]
  - WHITE BLOOD CELL COUNT INCREASED [None]
  - YAWNING [None]
